FAERS Safety Report 5463256-2 (Version None)
Quarter: 2007Q3

REPORT INFORMATION
  Report Type: 
  Country: None (occurrence: None)
  Receive Date: 20070920
  Receipt Date: 20070911
  Transmission Date: 20080115
  Serious: Yes (Congenital Anomaly, Other)
  Sender: FDA-Public Use
  Company Number: US-JNJFOC-20070902512

PATIENT
  Sex: Male

DRUGS (5)
  1. TOPAMAX [Suspect]
     Indication: DRUG EXPOSURE DURING PREGNANCY
  2. KEPPRA [Concomitant]
     Indication: DRUG EXPOSURE DURING PREGNANCY
     Dosage: 250 MG IN AM, 500 MG IN PM
  3. OXYBUTIN [Concomitant]
     Indication: DRUG EXPOSURE DURING PREGNANCY
  4. NATAL PLUS [Concomitant]
     Indication: DRUG EXPOSURE DURING PREGNANCY
  5. TRAZODONE HCL [Concomitant]
     Indication: DRUG EXPOSURE DURING PREGNANCY

REACTIONS (2)
  - CONGENITAL ANOMALY [None]
  - FOETAL MALFORMATION [None]
